FAERS Safety Report 4713978-3 (Version None)
Quarter: 2005Q3

REPORT INFORMATION
  Report Type: 
  Country: None (occurrence: None)
  Receive Date: 20050713
  Receipt Date: 20050627
  Transmission Date: 20060218
  Serious: Yes (Death, Hospitalization)
  Sender: FDA-Public Use
  Company Number: UK140611

PATIENT
  Sex: 0

DRUGS (2)
  1. NEUPOGEN [Suspect]
     Indication: CHEMOTHERAPY
  2. CYTARABINE [Concomitant]

REACTIONS (6)
  - ACUTE RESPIRATORY DISTRESS SYNDROME [None]
  - ACUTE RESPIRATORY FAILURE [None]
  - ASPERGILLOSIS [None]
  - BRONCHOALVEOLAR LAVAGE ABNORMAL [None]
  - LUNG INFILTRATION [None]
  - PNEUMOCYSTIS JIROVECI INFECTION [None]
